FAERS Safety Report 18806139 (Version 7)
Quarter: 2021Q3

REPORT INFORMATION
  Report Type: Spontaneous
  Country: CA (occurrence: CA)
  Receive Date: 20210129
  Receipt Date: 20210814
  Transmission Date: 20211014
  Serious: Yes (Other)
  Sender: FDA-Public Use
  Company Number: CA-CELLTRION INC.-2020CA026459

PATIENT

DRUGS (6)
  1. INFLECTRA [Suspect]
     Active Substance: INFLIXIMAB-DYYB
     Indication: COLITIS ULCERATIVE
     Dosage: 1000 MG, EVERY 4 WEEKS
     Route: 042
     Dates: start: 20200903
  2. INFLECTRA [Suspect]
     Active Substance: INFLIXIMAB-DYYB
     Dosage: 1000 MG, EVERY 4 WEEKS
     Route: 042
     Dates: start: 20210429
  3. SOLU?MEDROL [Concomitant]
     Active Substance: METHYLPREDNISOLONE SODIUM SUCCINATE
     Indication: PREMEDICATION
     Dosage: 125 MG
     Route: 042
  4. INFLECTRA [Suspect]
     Active Substance: INFLIXIMAB-DYYB
     Dosage: 1000 MG, EVERY 4 WEEKS
     Route: 042
     Dates: start: 20201005
  5. INFLECTRA [Suspect]
     Active Substance: INFLIXIMAB-DYYB
     Dosage: 1000 MG, EVERY 4 WEEKS
     Route: 042
     Dates: start: 20210624
  6. PANTOPRAZOLE [Concomitant]
     Active Substance: PANTOPRAZOLE
     Dosage: UNK

REACTIONS (18)
  - Constipation [Unknown]
  - Dyspnoea [Not Recovered/Not Resolved]
  - Loss of personal independence in daily activities [Unknown]
  - Condition aggravated [Recovering/Resolving]
  - Arthralgia [Not Recovered/Not Resolved]
  - Sinusitis bacterial [Recovered/Resolved]
  - Nausea [Unknown]
  - Insomnia [Unknown]
  - Blood pressure increased [Unknown]
  - Off label use [Unknown]
  - Illness [Unknown]
  - Gastrooesophageal reflux disease [Unknown]
  - Dizziness [Unknown]
  - Abdominal distension [Unknown]
  - Eating disorder [Unknown]
  - Vomiting [Unknown]
  - Non-cardiac chest pain [Unknown]
  - Muscle spasms [Recovering/Resolving]

NARRATIVE: CASE EVENT DATE: 2020
